FAERS Safety Report 15980673 (Version 3)
Quarter: 2019Q3

REPORT INFORMATION
  Report Type: Spontaneous
  Country: JP (occurrence: JP)
  Receive Date: 20190219
  Receipt Date: 20190910
  Transmission Date: 20191004
  Serious: Yes (Other)
  Sender: FDA-Public Use
  Company Number: JP-BAYER-2019-032935

PATIENT
  Age: 75 Year
  Sex: Male

DRUGS (4)
  1. XOFIGO [Suspect]
     Active Substance: RADIUM RA-223 DICHLORIDE
     Indication: METASTASES TO BONE
     Dosage: 1 DF, Q1MON
     Route: 042
     Dates: start: 20181220, end: 20181220
  2. XOFIGO [Suspect]
     Active Substance: RADIUM RA-223 DICHLORIDE
     Indication: HORMONE-REFRACTORY PROSTATE CANCER
     Dosage: 1 DF, Q1MON
     Route: 042
     Dates: start: 20181122, end: 20181122
  3. XOFIGO [Suspect]
     Active Substance: RADIUM RA-223 DICHLORIDE
     Indication: HORMONE-REFRACTORY PROSTATE CANCER
     Dosage: 1 DF, Q1MON
     Route: 042
     Dates: start: 20190211, end: 20190211
  4. XOFIGO [Suspect]
     Active Substance: RADIUM RA-223 DICHLORIDE
     Indication: HORMONE-REFRACTORY PROSTATE CANCER
     Dosage: 1 DF, Q1MON
     Route: 042
     Dates: start: 20190117, end: 20190117

REACTIONS (5)
  - Nausea [Recovered/Resolved]
  - Anaemia [None]
  - Hormone-refractory prostate cancer [Not Recovered/Not Resolved]
  - Platelet count decreased [Recovering/Resolving]
  - Haemoglobin decreased [Recovered/Resolved]

NARRATIVE: CASE EVENT DATE: 20190131
